FAERS Safety Report 7269517-9 (Version None)
Quarter: 2011Q1

REPORT INFORMATION
  Report Type: 
  Country: None (occurrence: None)
  Receive Date: 20110202
  Receipt Date: 20110119
  Transmission Date: 20110831
  Serious: Yes (Other)
  Sender: FDA-Public Use
  Company Number: DE-RANBAXY-2010RR-39018

PATIENT
  Age: 18 Year
  Sex: Male

DRUGS (3)
  1. QUETIAPINE [Concomitant]
     Dosage: UNK
  2. AMISULPRIDE [Concomitant]
     Dosage: UNK
  3. RISPERIDONE [Suspect]
     Dosage: 6 MG, UNK

REACTIONS (2)
  - DRUG WITHDRAWAL SYNDROME [None]
  - HALLUCINATION, AUDITORY [None]
